FAERS Safety Report 5688226-0 (Version None)
Quarter: 2008Q1

REPORT INFORMATION
  Report Type: 
  Country: None (occurrence: None)
  Receive Date: 20080327
  Receipt Date: 20080319
  Transmission Date: 20080703
  Serious: Yes (Hospitalization)
  Sender: FDA-Public Use
  Company Number: 100#08#2008-01603

PATIENT
  Age: 39 Year
  Sex: Female

DRUGS (6)
  1. CARBAMAZEPINE [Suspect]
     Indication: COMPLEX PARTIAL SEIZURES
     Dosage: 800 MG
  2. CARBAMAZEPINE [Suspect]
     Indication: COMPLEX PARTIAL SEIZURES
     Dosage: 800 MG
     Dates: start: 19980401
  3. TOPIRAMATE [Suspect]
     Indication: COMPLEX PARTIAL SEIZURES
     Dosage: 50 MG; 200 MG; 250 MG; 275 MG; 300 MG
     Dates: start: 19980101, end: 19980301
  4. TOPIRAMATE [Suspect]
     Indication: COMPLEX PARTIAL SEIZURES
     Dosage: 50 MG; 200 MG; 250 MG; 275 MG; 300 MG
     Dates: start: 19980401
  5. TOPIRAMATE [Suspect]
     Indication: COMPLEX PARTIAL SEIZURES
     Dosage: 50 MG; 200 MG; 250 MG; 275 MG; 300 MG
     Dates: start: 19980101
  6. TOPIRAMATE [Suspect]
     Indication: COMPLEX PARTIAL SEIZURES
     Dosage: 50 MG; 200 MG; 250 MG; 275 MG; 300 MG
     Dates: start: 19980301

REACTIONS (11)
  - ACUTE HEPATIC FAILURE [None]
  - COAGULOPATHY [None]
  - DRUG INTERACTION [None]
  - HYPOGLYCAEMIA [None]
  - LIVER TRANSPLANT [None]
  - LOSS OF CONSCIOUSNESS [None]
  - METABOLIC ACIDOSIS [None]
  - OLIGURIA [None]
  - RENAL FAILURE [None]
  - SOMNOLENCE [None]
  - WEIGHT DECREASED [None]
